FAERS Safety Report 12474041 (Version 2)
Quarter: 2016Q3

REPORT INFORMATION
  Report Type: Spontaneous
  Country: JP (occurrence: JP)
  Receive Date: 20160616
  Receipt Date: 20160712
  Transmission Date: 20161109
  Serious: Yes (Other)
  Sender: FDA-Public Use
  Company Number: JP-SPECTRUM PHARMACEUTICALS, INC.-16-Z-JP-00165

PATIENT
  Age: 49 Year
  Sex: Male

DRUGS (1)
  1. ZEVALIN [Suspect]
     Active Substance: IBRITUMOMAB TIUXETAN
     Indication: B-CELL LYMPHOMA
     Dosage: UNK, SINGLE
     Route: 042

REACTIONS (1)
  - Thymoma malignant recurrent [Unknown]
